FAERS Safety Report 10910304 (Version 1)
Quarter: 2015Q1

REPORT INFORMATION
  Report Type: Spontaneous
  Country: US (occurrence: US)
  Receive Date: 20150312
  Receipt Date: 20150312
  Transmission Date: 20150721
  Serious: No
  Sender: FDA-Public Use
  Company Number: US-SA-2014SA156005

PATIENT
  Age: 56 Year
  Sex: Female

DRUGS (3)
  1. CLARITIN [Concomitant]
     Active Substance: LORATADINE
  2. LEXAPRO [Concomitant]
     Active Substance: ESCITALOPRAM OXALATE
  3. NASACORT ALLERGY 24HR [Suspect]
     Active Substance: TRIAMCINOLONE ACETONIDE
     Indication: MULTIPLE ALLERGIES
     Dosage: 10 DAYS AGO?2 SPRAYS/ NOSTRIL
     Route: 045

REACTIONS (2)
  - Paranasal sinus discomfort [Unknown]
  - Drug ineffective [Unknown]
